FAERS Safety Report 6072527-0 (Version None)
Quarter: 2009Q1

REPORT INFORMATION
  Report Type: 
  Country: None (occurrence: None)
  Receive Date: 20090210
  Receipt Date: 20090205
  Transmission Date: 20090719
  Serious: Yes (Death, Other)
  Sender: FDA-Public Use
  Company Number: US-ROCHE-610002

PATIENT
  Age: 80 Year
  Sex: Female

DRUGS (1)
  1. BONIVA [Suspect]
     Indication: OSTEOPENIA
     Dosage: FORM: INJECTION, INFUSION
     Route: 042
     Dates: start: 20080703, end: 20081019

REACTIONS (3)
  - ARRHYTHMIA [None]
  - CARDIAC VALVE REPLACEMENT COMPLICATION [None]
  - MITRAL VALVE STENOSIS [None]
